FAERS Safety Report 7151606-0 (Version None)
Quarter: 2010Q4

REPORT INFORMATION
  Report Type: 
  Country: None (occurrence: None)
  Receive Date: 20101210
  Receipt Date: 20101207
  Transmission Date: 20110411
  Serious: Yes (Hospitalization)
  Sender: FDA-Public Use
  Company Number: CHPA2010US04404

PATIENT
  Age: 73 Year
  Sex: Female
  Weight: 56.236 kg

DRUGS (1)
  1. VOLTAREN [Suspect]
     Indication: ARTHRALGIA
     Dosage: 2 GRAMS OR LITTLE MORE THAN 2 GRAMS, QID
     Route: 061
     Dates: start: 20090101

REACTIONS (7)
  - CONTUSION [None]
  - DIZZINESS [None]
  - DRUG ADMINISTERED AT INAPPROPRIATE SITE [None]
  - LOSS OF CONSCIOUSNESS [None]
  - OVERDOSE [None]
  - SKELETAL INJURY [None]
  - WRONG TECHNIQUE IN DRUG USAGE PROCESS [None]
